FAERS Safety Report 6395233-1 (Version None)
Quarter: 2009Q4

REPORT INFORMATION
  Report Type: 
  Country: None (occurrence: None)
  Receive Date: 20091009
  Receipt Date: 20090929
  Transmission Date: 20100525
  Serious: Yes (Death)
  Sender: FDA-Public Use
  Company Number: US-ELI_LILLY_AND_COMPANY-US200908006138

PATIENT
  Sex: Male

DRUGS (3)
  1. BYETTA [Suspect]
     Indication: TYPE 2 DIABETES MELLITUS
     Dosage: 5 UG, 2/D
     Route: 058
     Dates: start: 20070101
  2. ASPIRIN [Concomitant]
     Dosage: UNK, DAILY (1/D)
  3. LIPITOR [Concomitant]

REACTIONS (5)
  - ABDOMINAL PAIN [None]
  - METASTASES TO LIVER [None]
  - NAUSEA [None]
  - OCULAR CANCER METASTATIC [None]
  - WEIGHT DECREASED [None]
